FAERS Safety Report 6422946-5 (Version None)
Quarter: 2009Q4

REPORT INFORMATION
  Report Type: 
  Country: None (occurrence: None)
  Receive Date: 20091102
  Receipt Date: 20091029
  Transmission Date: 20100525
  Serious: Yes (Death)
  Sender: FDA-Public Use
  Company Number: PHEH2009US14558

PATIENT
  Sex: Male

DRUGS (3)
  1. EXJADE [Suspect]
     Indication: LYMPHATIC SYSTEM NEOPLASM
     Dosage: 1500 MG, DAILY
     Route: 048
     Dates: start: 20090829, end: 20090925
  2. EXJADE [Suspect]
     Indication: HAEMATOPOIETIC NEOPLASM
  3. EXJADE [Suspect]
     Indication: MYELODYSPLASTIC SYNDROME

REACTIONS (1)
  - DEATH [None]
